FAERS Safety Report 6738999-0 (Version None)
Quarter: 2010Q2

REPORT INFORMATION
  Report Type: 
  Country: None (occurrence: None)
  Receive Date: 20100524
  Receipt Date: 20100524
  Transmission Date: 20101027
  Serious: Yes (Death)
  Sender: FDA-Public Use
  Company Number: None

PATIENT
  Age: 82 Year
  Sex: Female
  Weight: 39.9165 kg

DRUGS (4)
  1. FENTANYL [Suspect]
     Indication: SEDATION
     Dosage: SEVERAL TIMES
  2. UNASYN [Suspect]
  3. SYNTHROID [Concomitant]
  4. EYE DROPS FOR GALUCOMA [Concomitant]

REACTIONS (5)
  - CONFUSIONAL STATE [None]
  - HYPERHIDROSIS [None]
  - LOSS OF CONSCIOUSNESS [None]
  - REACTION TO DRUG EXCIPIENTS [None]
  - RESPIRATORY DEPRESSION [None]
